FAERS Safety Report 17011461 (Version 1)
Quarter: 2019Q4

REPORT INFORMATION
  Report Type: Spontaneous
  Country: US (occurrence: US)
  Receive Date: 20191108
  Receipt Date: 20191108
  Transmission Date: 20200122
  Serious: Yes (Hospitalization)
  Sender: FDA-Public Use
  Company Number: US-NOVOPROD-670422

PATIENT
  Age: 59 Year
  Sex: Male

DRUGS (2)
  1. TRESIBA [Suspect]
     Active Substance: INSULIN DEGLUDEC
     Indication: TYPE 2 DIABETES MELLITUS
     Dosage: 4 IU, QD (4-5 UNITS ONCE A DAY)
     Route: 058
     Dates: start: 201904
  2. TRESIBA [Suspect]
     Active Substance: INSULIN DEGLUDEC
     Dosage: ONCE DAILY AT NIGHT AFTER DINNER ONLY IF BLOOD SUGAR EXCEEDS 180MG/DL
     Route: 058

REACTIONS (2)
  - Blood glucose increased [Recovered/Resolved]
  - Off label use [Unknown]

NARRATIVE: CASE EVENT DATE: 201906
